FAERS Safety Report 9405312 (Version 2)
Quarter: 2013Q3

REPORT INFORMATION
  Report Type: Spontaneous
  Country: FR (occurrence: FR)
  Receive Date: 20130717
  Receipt Date: 20130808
  Transmission Date: 20140515
  Serious: Yes (Hospitalization)
  Sender: FDA-Public Use
  Company Number: FR-ABBOTT-13P-056-1117470-00

PATIENT
  Age: 59 Year
  Sex: Male

DRUGS (8)
  1. NORVIR [Suspect]
     Indication: HIV INFECTION
     Route: 048
     Dates: start: 20030118
  2. RAMIPRIL [Suspect]
     Indication: HYPERTENSION
     Dosage: 5 MG DAILY
     Route: 048
     Dates: start: 20120802, end: 20130129
  3. BACTRIM [Suspect]
     Indication: PRODUCT USED FOR UNKNOWN INDICATION
     Route: 048
     Dates: start: 19940401, end: 20020907
  4. BACTRIM [Suspect]
     Route: 048
     Dates: start: 20110108
  5. REYATAZ [Suspect]
     Indication: HIV INFECTION
     Route: 048
     Dates: start: 20090207
  6. TRUVADA [Suspect]
     Indication: PRODUCT USED FOR UNKNOWN INDICATION
     Dosage: 200MG/245MG
     Dates: start: 20090207
  7. LOCERYL [Concomitant]
     Indication: PRODUCT USED FOR UNKNOWN INDICATION
  8. KIVEXA [Concomitant]
     Indication: PRODUCT USED FOR UNKNOWN INDICATION

REACTIONS (4)
  - Tubulointerstitial nephritis [Recovering/Resolving]
  - Renal tubular necrosis [Recovering/Resolving]
  - Renal failure acute [Recovering/Resolving]
  - Nephrolithiasis [Recovered/Resolved]
